FAERS Safety Report 9689759 (Version 2)
Quarter: 2014Q1

REPORT INFORMATION
  Report Type: Spontaneous
  Country: US (occurrence: US)
  Receive Date: 20131115
  Receipt Date: 20140218
  Transmission Date: 20141002
  Serious: Yes (Other)
  Sender: FDA-Public Use
  Company Number: US-JNJFOC-20131104189

PATIENT
  Age: 59 Year
  Sex: Male
  Weight: 71.22 kg

DRUGS (9)
  1. STELARA [Suspect]
     Indication: PSORIASIS
     Dosage: TOTAL NUMBER OF INJECTIONS: 2
     Route: 058
     Dates: start: 20130104, end: 20130201
  2. STELARA [Suspect]
     Indication: PSORIASIS
     Route: 058
     Dates: start: 20130523
  3. STELARA [Suspect]
     Indication: PSORIASIS
     Route: 058
     Dates: start: 20140127
  4. PREDNISONE [Concomitant]
     Route: 048
     Dates: start: 201205
  5. METHOTREXATE [Concomitant]
     Route: 048
     Dates: start: 20130212, end: 201311
  6. CITALOPRAM [Concomitant]
     Route: 048
  7. ALBUTEROL [Concomitant]
     Route: 055
     Dates: start: 201209
  8. SYMBICORT [Concomitant]
     Route: 055
     Dates: start: 201209
  9. SPIRIVA [Concomitant]
     Route: 055
     Dates: start: 201209

REACTIONS (4)
  - Cellulitis [Unknown]
  - Staphylococcal infection [Unknown]
  - Gynaecomastia [Not Recovered/Not Resolved]
  - Psoriasis [Recovering/Resolving]
